FAERS Safety Report 6206293-2 (Version None)
Quarter: 2009Q2

REPORT INFORMATION
  Report Type: 
  Country: None (occurrence: None)
  Receive Date: 20090528
  Receipt Date: 20090520
  Transmission Date: 20091009
  Serious: Yes (Other)
  Sender: FDA-Public Use
  Company Number: US-ROCHE-634028

PATIENT
  Age: 66 Year
  Sex: Female

DRUGS (2)
  1. BONIVA [Suspect]
     Indication: OSTEOPENIA
     Route: 048
     Dates: start: 20060501, end: 20090501
  2. CELEBREX [Concomitant]

REACTIONS (5)
  - ARTHROPATHY [None]
  - JOINT RANGE OF MOTION DECREASED [None]
  - KNEE OPERATION [None]
  - OEDEMA PERIPHERAL [None]
  - TREMOR [None]
